FAERS Safety Report 7750005-8 (Version None)
Quarter: 2011Q3

REPORT INFORMATION
  Report Type: 
  Country: None (occurrence: None)
  Receive Date: 20110914
  Receipt Date: 20110908
  Transmission Date: 20111222
  Serious: Yes (Other)
  Sender: FDA-Public Use
  Company Number: US-PFIZER INC-2011210873

PATIENT
  Age: 60 Year
  Sex: Female

DRUGS (5)
  1. PHENYTOIN [Suspect]
     Indication: CONVULSION
  2. SIMVASTATIN [Concomitant]
  3. KEPPRA [Concomitant]
  4. AMLODIPINE BESILATE [Concomitant]
  5. BENAZEPRIL [Concomitant]

REACTIONS (1)
  - ATRIOVENTRICULAR BLOCK [None]
